FAERS Safety Report 12198861 (Version 1)
Quarter: 2016Q1

REPORT INFORMATION
  Report Type: Spontaneous
  Country: US (occurrence: US)
  Receive Date: 20160322
  Receipt Date: 20160322
  Transmission Date: 20160526
  Serious: No
  Sender: FDA-Public Use
  Company Number: US-BIOGEN-2016BI00208011

PATIENT

DRUGS (1)
  1. TECFIDERA [Suspect]
     Active Substance: DIMETHYL FUMARATE
     Indication: MULTIPLE SCLEROSIS
     Route: 048
     Dates: start: 201410

REACTIONS (5)
  - Abdominal pain upper [Recovered/Resolved]
  - Alopecia [Unknown]
  - Flushing [Recovered/Resolved]
  - Gastric disorder [Recovered/Resolved]
  - General symptom [Unknown]
